FAERS Safety Report 24534581 (Version 1)
Quarter: 2024Q4

REPORT INFORMATION
  Report Type: Report from Study
  Country: US (occurrence: US)
  Receive Date: 20241022
  Receipt Date: 20241022
  Transmission Date: 20250114
  Serious: Yes (Other)
  Sender: JAZZ
  Company Number: US-JAZZ PHARMACEUTICALS-2023-US-016379

PATIENT
  Sex: Female

DRUGS (8)
  1. SODIUM OXYBATE [Suspect]
     Active Substance: SODIUM OXYBATE
     Indication: Narcolepsy
     Dosage: 4.5GRAM FOR 1ST DOSE + 4.25 GRAM FOR SECOND DOSE
  2. SODIUM OXYBATE [Suspect]
     Active Substance: SODIUM OXYBATE
     Indication: Cataplexy
     Dosage: 5 GRAM FOR 1ST DOSE + 4 GRAM FOR SECOND DOSE
     Dates: start: 20230824
  3. SODIUM OXYBATE [Suspect]
     Active Substance: SODIUM OXYBATE
     Dosage: 5.25 GRAMS AT BEDTIME AND 3.75 GRAMS 2.5-4 HOURS LATER
  4. SODIUM OXYBATE [Suspect]
     Active Substance: SODIUM OXYBATE
     Dosage: 5.5 GRAMS FOR FIRST DOSE AND 4.25 GRAMS FOR SECOND DOSE.
  5. SODIUM OXYBATE [Suspect]
     Active Substance: SODIUM OXYBATE
     Dosage: TAKING 5G AT BEDTIME AND 4G
  6. FLAVOXATE [Concomitant]
     Active Substance: FLAVOXATE
     Indication: Product used for unknown indication
     Dosage: UNK
     Dates: start: 20230421
  7. LUPRON DEPOT [Concomitant]
     Active Substance: LEUPROLIDE ACETATE
     Indication: Product used for unknown indication
     Dosage: UNK
     Dates: start: 20231201
  8. NORETHINDRONE [Concomitant]
     Active Substance: NORETHINDRONE
     Indication: Product used for unknown indication
     Dosage: UNK
     Dates: start: 20231201

REACTIONS (9)
  - Pickwickian syndrome [Unknown]
  - Stress [Unknown]
  - Bruxism [Unknown]
  - Cystitis interstitial [Unknown]
  - Condition aggravated [Unknown]
  - Obstructive sleep apnoea syndrome [Unknown]
  - Prescribed overdose [Unknown]
  - Product administration interrupted [Unknown]
  - Intentional dose omission [Unknown]
